FAERS Safety Report 5572964-4 (Version None)
Quarter: 2007Q4

REPORT INFORMATION
  Report Type: 
  Country: None (occurrence: None)
  Receive Date: 20071224
  Receipt Date: 20071219
  Transmission Date: 20080405
  Serious: Yes (Death, Hospitalization)
  Sender: FDA-Public Use
  Company Number: DE-BRISTOL-MYERS SQUIBB COMPANY-13999875

PATIENT
  Age: 53 Year
  Sex: Female
  Weight: 82 kg

DRUGS (9)
  1. TAXOL [Suspect]
     Indication: BREAST CANCER
     Route: 042
     Dates: start: 20071016, end: 20071113
  2. CYCLOPHOSPHAMIDE [Suspect]
     Indication: BREAST CANCER
     Route: 042
     Dates: start: 20070822, end: 20071002
  3. XELODA [Suspect]
     Indication: BREAST CANCER
     Dosage: DAY 1-14 EVERY 3 WEEKS.
     Route: 048
     Dates: start: 20071016, end: 20071115
  4. EPIRUBICIN [Suspect]
     Indication: BREAST CANCER
     Route: 042
     Dates: start: 20070822, end: 20071002
  5. NEORECORMON [Concomitant]
     Route: 058
     Dates: start: 20070822, end: 20071106
  6. L-THYROXINE [Concomitant]
     Route: 048
     Dates: start: 20020101
  7. DIOVAN HCT [Concomitant]
     Dosage: 1 DOSAGE FORM = 160 MG/125 MG.
     Route: 048
     Dates: start: 20000101
  8. FERRO SANOL [Concomitant]
     Route: 048
     Dates: start: 20070801
  9. DIFLUCAN [Concomitant]
     Dosage: FLUCONAZOLE LIQUID
     Route: 048
     Dates: start: 20071115

REACTIONS (5)
  - LEUKOPENIA [None]
  - MUCOSAL ULCERATION [None]
  - PYREXIA [None]
  - SEPSIS [None]
  - THROMBOCYTOPENIA [None]
